FAERS Safety Report 8093700-6 (Version None)
Quarter: 2012Q1

REPORT INFORMATION
  Report Type: 
  Country: None (occurrence: None)
  Receive Date: 20120129
  Receipt Date: 20111026
  Transmission Date: 20120608
  Serious: No
  Sender: FDA-Public Use
  Company Number: US-ABBOTT-11P-163-0868634-00

PATIENT
  Age: 18 Year
  Sex: Male

DRUGS (7)
  1. FLAGYL [Concomitant]
     Indication: CROHN'S DISEASE
  2. PENTASA [Concomitant]
     Indication: CROHN'S DISEASE
  3. HYDROCORTISONE [Concomitant]
     Indication: PRODUCT USED FOR UNKNOWN INDICATION
  4. ANUSOL HC [Concomitant]
     Indication: PRODUCT USED FOR UNKNOWN INDICATION
     Route: 054
  5. HUMIRA [Suspect]
     Indication: CROHN'S DISEASE
     Dates: start: 20110601
  6. MERCAPTOPURINE [Concomitant]
     Indication: CROHN'S DISEASE
  7. HUMIRA [Suspect]
     Dates: end: 20110901

REACTIONS (1)
  - FATIGUE [None]
